FAERS Safety Report 5452988-8 (Version None)
Quarter: 2007Q3

REPORT INFORMATION
  Report Type: 
  Country: None (occurrence: None)
  Receive Date: 20070914
  Receipt Date: 20070904
  Transmission Date: 20080115
  Serious: Yes (Hospitalization)
  Sender: FDA-Public Use
  Company Number: GB-PFIZER INC-2007074012

PATIENT
  Age: 58 Year
  Sex: Male

DRUGS (2)
  1. CHAMPIX [Suspect]
     Route: 048
  2. WARFARIN SODIUM [Interacting]

REACTIONS (6)
  - ABDOMINAL PAIN [None]
  - DRUG INTERACTION [None]
  - GROIN PAIN [None]
  - HAEMOGLOBIN DECREASED [None]
  - INTERNATIONAL NORMALISED RATIO ABNORMAL [None]
  - INTRA-ABDOMINAL HAEMATOMA [None]
